FAERS Safety Report 6429066-4 (Version None)
Quarter: 2009Q4

REPORT INFORMATION
  Report Type: 
  Country: None (occurrence: None)
  Receive Date: 20091105
  Receipt Date: 20091028
  Transmission Date: 20100525
  Serious: Yes (Other)
  Sender: FDA-Public Use
  Company Number: US-BAXTER-2009BH011090

PATIENT
  Age: 69 Year
  Sex: Male
  Weight: 89 kg

DRUGS (12)
  1. HEPARIN SODIUM INJECTION [Suspect]
     Indication: DRUG USE FOR UNKNOWN INDICATION
     Route: 041
     Dates: start: 20070711, end: 20070719
  2. HEPARIN SODIUM INJECTION [Suspect]
     Route: 058
     Dates: start: 20070711, end: 20070719
  3. HEPARIN SODIUM INJECTION [Suspect]
     Route: 041
     Dates: start: 20070711, end: 20070719
  4. DYNACIRC [Concomitant]
     Indication: DRUG USE FOR UNKNOWN INDICATION
     Route: 048
  5. ALBUTEROL [Concomitant]
     Indication: DRUG USE FOR UNKNOWN INDICATION
     Route: 055
  6. ALBUTEROL [Concomitant]
     Route: 055
  7. ADVAIR DISKUS 100/50 [Concomitant]
     Indication: DRUG USE FOR UNKNOWN INDICATION
     Route: 055
  8. SPIRIVA [Concomitant]
     Indication: DRUG USE FOR UNKNOWN INDICATION
     Route: 048
  9. LIPITOR [Concomitant]
     Indication: DRUG USE FOR UNKNOWN INDICATION
     Route: 048
  10. PREDNISONE [Concomitant]
     Indication: DRUG USE FOR UNKNOWN INDICATION
     Route: 065
  11. CHANTIX [Concomitant]
     Indication: DRUG USE FOR UNKNOWN INDICATION
     Route: 065
  12. SPIRIVA [Concomitant]
     Route: 048

REACTIONS (11)
  - ANAEMIA [None]
  - DECREASED APPETITE [None]
  - DYSPNOEA [None]
  - GAIT DISTURBANCE [None]
  - HEPARIN-INDUCED THROMBOCYTOPENIA [None]
  - HYPERHIDROSIS [None]
  - INSOMNIA [None]
  - OXYGEN SATURATION DECREASED [None]
  - THIRST [None]
  - THROMBOSIS [None]
  - WEIGHT DECREASED [None]
